FAERS Safety Report 6022164-9 (Version None)
Quarter: 2008Q4

REPORT INFORMATION
  Report Type: 
  Country: None (occurrence: None)
  Receive Date: 20081229
  Receipt Date: 20081225
  Transmission Date: 20090506
  Serious: Yes (Death)
  Sender: FDA-Public Use
  Company Number: JP-B.I. PHARMACEUTICALS,INC./RIDGEFIELD-2006-BP-09520NB

PATIENT
  Sex: Female
  Weight: 40 kg

DRUGS (5)
  1. BI-SIFROL TABLETS [Suspect]
     Indication: PARKINSON'S DISEASE
     Dosage: .5MG
     Route: 048
     Dates: start: 20050520, end: 20070908
  2. ACECOL [Concomitant]
     Indication: HYPERTENSION
     Dosage: 4MG
     Route: 048
     Dates: start: 20021029, end: 20070908
  3. NORVASK [Concomitant]
     Indication: HYPERTENSION
     Dosage: 2.5MG
     Route: 048
     Dates: start: 20060412, end: 20070908
  4. UFT [Concomitant]
     Indication: LUNG CANCER METASTATIC
     Dosage: 450MG
     Route: 048
     Dates: start: 20060106, end: 20070811
  5. LEUCOVORIN CALCIUM [Concomitant]
     Indication: LUNG CANCER METASTATIC
     Dosage: 75MG
     Route: 048
     Dates: start: 20060106, end: 20070908

REACTIONS (6)
  - ANAEMIA [None]
  - LARGE INTESTINE CARCINOMA [None]
  - MELAENA [None]
  - METASTASES TO LUNG [None]
  - NAUSEA [None]
  - SOMNOLENCE [None]
